FAERS Safety Report 7905735-1 (Version None)
Quarter: 2011Q4

REPORT INFORMATION
  Report Type: 
  Country: None (occurrence: None)
  Receive Date: 20111108
  Receipt Date: 20090513
  Transmission Date: 20120403
  Serious: Yes (Death, Hospitalization, Other)
  Sender: FDA-Public Use
  Company Number: 09-000851

PATIENT
  Age: 66 Year
  Sex: Female

DRUGS (3)
  1. SORIATANE [Concomitant]
  2. TACLONEX [Suspect]
     Indication: PSORIASIS
     Dosage: TOPICAL
     Route: 061
  3. HYDROXYUREA [Concomitant]

REACTIONS (6)
  - PUSTULAR PSORIASIS [None]
  - INCORRECT DRUG ADMINISTRATION DURATION [None]
  - ACUTE MYELOID LEUKAEMIA [None]
  - IDIOSYNCRATIC DRUG REACTION [None]
  - CONDITION AGGRAVATED [None]
  - PNEUMONIA [None]
